FAERS Safety Report 17119849 (Version 1)
Quarter: 2019Q4

REPORT INFORMATION
  Report Type: Spontaneous
  Country: SE (occurrence: SE)
  Receive Date: 20191206
  Receipt Date: 20191206
  Transmission Date: 20200122
  Serious: Yes (Hospitalization)
  Sender: FDA-Public Use
  Company Number: SE-TEVA-2019-SE-1147132

PATIENT
  Age: 27 Year
  Sex: Male

DRUGS (4)
  1. TRAMADOL. [Suspect]
     Active Substance: TRAMADOL
     Dosage: 8 PCS TRAMADOL 200 MG
     Route: 048
     Dates: start: 20180502, end: 20180502
  2. PROPAVAN [Suspect]
     Active Substance: PROPIOMAZINE
     Dosage: 20 PROPAVANE 25 MG
     Route: 048
     Dates: start: 20180502, end: 20180502
  3. LERGIGAN (PROMETHAZINE HYDROCHLORIDE) [Suspect]
     Active Substance: PROMETHAZINE HYDROCHLORIDE
     Route: 048
     Dates: start: 20180502, end: 20180502
  4. IMOVANE [Suspect]
     Active Substance: ZOPICLONE
     Dosage: 10 PCS IMOVANE 7.5 MG
     Route: 048
     Dates: start: 20180502, end: 20180502

REACTIONS (4)
  - Agitation [Unknown]
  - Anxiety [Unknown]
  - Intentional overdose [Unknown]
  - Intentional self-injury [Unknown]

NARRATIVE: CASE EVENT DATE: 20180502
